FAERS Safety Report 19912399 (Version 1)
Quarter: 2021Q4

REPORT INFORMATION
  Report Type: Spontaneous
  Country: US (occurrence: US)
  Receive Date: 20211001
  Receipt Date: 20211001
  Transmission Date: 20220303
  Serious: Yes (Life-Threatening)
  Sender: FDA-Public Use
  Company Number: None

PATIENT
  Age: 64 Year

DRUGS (1)
  1. CLOZAPINE [Suspect]
     Active Substance: CLOZAPINE

REACTIONS (4)
  - Agitation [None]
  - Abnormal behaviour [None]
  - Product physical issue [None]
  - Suspected counterfeit product [None]

NARRATIVE: CASE EVENT DATE: 20210728
